FAERS Safety Report 15287373 (Version 1)
Quarter: 2018Q3

REPORT INFORMATION
  Report Type: Report from Study
  Country: None (occurrence: US)
  Receive Date: 20180817
  Receipt Date: 20180817
  Transmission Date: 20181010
  Serious: Yes (Other)
  Sender: FDA-Public Use
  Company Number: US-ABBVIE-18K-163-2449683-00

PATIENT
  Age: 46 Year
  Sex: Female

DRUGS (1)
  1. HUMIRA [Suspect]
     Active Substance: ADALIMUMAB
     Indication: RHEUMATOID ARTHRITIS
     Route: 058

REACTIONS (11)
  - Urinary incontinence [Unknown]
  - Back injury [Unknown]
  - Intentional product misuse [Unknown]
  - Device effect decreased [Unknown]
  - Fear [Unknown]
  - Muscle spasms [Unknown]
  - Suicide attempt [Unknown]
  - Vertigo [Unknown]
  - Non-cardiac chest pain [Unknown]
  - Suicidal ideation [Unknown]
  - Mobility decreased [Unknown]

NARRATIVE: CASE EVENT DATE: 2006
